FAERS Safety Report 5643979-2 (Version None)
Quarter: 2008Q1

REPORT INFORMATION
  Report Type: 
  Country: None (occurrence: None)
  Receive Date: 20080131
  Receipt Date: 20071221
  Transmission Date: 20080703
  Serious: Yes (Hospitalization, Other)
  Sender: FDA-Public Use
  Company Number: 163-21880-07121291

PATIENT
  Age: 65 Year
  Sex: Female

DRUGS (6)
  1. REVLIMID [Suspect]
     Indication: MULTIPLE MYELOMA
     Dosage: 20 MG, EVERY DAY FOR 21, ORAL
     Route: 048
     Dates: start: 20070918, end: 20071115
  2. LASIX [Concomitant]
  3. IRON (IRON) [Concomitant]
  4. PROTONIX [Concomitant]
  5. DILAUDID [Concomitant]
  6. FENTANYL (FENTANYL) (POLTICE OR PATCH) [Concomitant]

REACTIONS (3)
  - ABDOMINAL PAIN [None]
  - PANCREATITIS [None]
  - PULMONARY EMBOLISM [None]
